FAERS Safety Report 9608474 (Version 2)
Quarter: 2013Q4

REPORT INFORMATION
  Report Type: Spontaneous
  Country: FR (occurrence: FR)
  Receive Date: 20131009
  Receipt Date: 20131108
  Transmission Date: 20140711
  Serious: Yes (Hospitalization, Other)
  Sender: FDA-Public Use
  Company Number: FR-MERCK-1310FRA000922

PATIENT
  Age: 51 Year
  Sex: Female

DRUGS (4)
  1. VICTRELIS [Suspect]
     Indication: HEPATITIS C
     Dosage: 800 MG, TID
     Route: 048
     Dates: start: 20110505, end: 20120306
  2. VIRAFERONPEG [Suspect]
     Dosage: 100 MICROGRAM, QW
     Dates: start: 20110405, end: 20111107
  3. VIRAFERONPEG [Suspect]
     Dosage: 80 MICROGRAM, QW
     Dates: start: 20111107, end: 20120306
  4. REBETOL [Suspect]
     Dosage: 800 MG, QD
     Route: 048
     Dates: start: 20110405, end: 20120306

REACTIONS (3)
  - Pyelonephritis [Recovered/Resolved]
  - Cardiac failure [Recovered/Resolved]
  - Pancytopenia [Recovered/Resolved]
